FAERS Safety Report 6772241-X (Version None)
Quarter: 2010Q2

REPORT INFORMATION
  Report Type: 
  Country: None (occurrence: None)
  Receive Date: 20100616
  Receipt Date: 20090713
  Transmission Date: 20101027
  Serious: No
  Sender: FDA-Public Use
  Company Number: US-ASTRAZENECA-2009UW19462

PATIENT
  Sex: Male

DRUGS (2)
  1. PULMICORT RESPULES [Suspect]
     Indication: ASTHMA
     Dosage: .5 MG, 1-2 TIMES DAILY
     Route: 055
  2. ALBUTEROL [Concomitant]

REACTIONS (2)
  - CHOKING [None]
  - PRODUCTIVE COUGH [None]
